FAERS Safety Report 9752778 (Version 2)
Quarter: 2013Q4

REPORT INFORMATION
  Report Type: Spontaneous
  Country: US (occurrence: US)
  Receive Date: 20131213
  Receipt Date: 20131213
  Transmission Date: 20140711
  Serious: Yes (Other)
  Sender: FDA-Public Use
  Company Number: US-ASTRAZENECA-2011SE73609

PATIENT
  Age: 53 Year
  Sex: Female
  Weight: 81.6 kg

DRUGS (13)
  1. SYMBICORT PMDI [Suspect]
     Indication: CHRONIC OBSTRUCTIVE PULMONARY DISEASE
     Dosage: 160/4.5 MCG, 2 PUFFS TWO TIMES A DAY
     Route: 055
  2. SYMBICORT PMDI [Suspect]
     Indication: CHRONIC OBSTRUCTIVE PULMONARY DISEASE
     Dosage: 160/4.5 MCG, 3 PUFFS PER DAY
     Route: 055
  3. SYMBICORT PMDI [Suspect]
     Indication: CHRONIC OBSTRUCTIVE PULMONARY DISEASE
     Dosage: UNKNOWN
     Route: 055
     Dates: start: 2010
  4. NEXIUM [Suspect]
     Indication: DYSPEPSIA
     Route: 048
     Dates: end: 201311
  5. NEXIUM [Suspect]
     Indication: GASTROOESOPHAGEAL REFLUX DISEASE
     Route: 048
     Dates: end: 201311
  6. TOPROL XL [Suspect]
     Indication: HYPERTENSION
     Dosage: DAILY
     Route: 048
     Dates: start: 2010
  7. COZAAR [Concomitant]
     Indication: HYPERTENSION
     Route: 048
  8. LORATADINE [Concomitant]
     Indication: HYPERSENSITIVITY
     Route: 048
  9. LOVASTATIN [Concomitant]
     Indication: BLOOD CHOLESTEROL ABNORMAL
     Route: 048
  10. AMLODIPINE [Concomitant]
     Indication: HYPERTENSION
     Route: 048
  11. TRAMADOL [Concomitant]
     Indication: BACK PAIN
     Route: 048
  12. TRAMADOL [Concomitant]
     Indication: MUSCLE RELAXANT THERAPY
     Route: 048
  13. VICODIN [Concomitant]
     Indication: BACK PAIN
     Dosage: 500 MG, THREE TIMES A DAY
     Route: 048

REACTIONS (12)
  - Uterine haemorrhage [Recovering/Resolving]
  - Uterine polyp [Recovering/Resolving]
  - Dyspepsia [Not Recovered/Not Resolved]
  - Dysphagia [Not Recovered/Not Resolved]
  - Musculoskeletal discomfort [Not Recovered/Not Resolved]
  - Spinal osteoarthritis [Not Recovered/Not Resolved]
  - Chronic obstructive pulmonary disease [Not Recovered/Not Resolved]
  - Dyspnoea [Unknown]
  - Back disorder [Not Recovered/Not Resolved]
  - Hypertension [Not Recovered/Not Resolved]
  - Intentional drug misuse [Unknown]
  - Drug dose omission [Not Recovered/Not Resolved]
